FAERS Safety Report 5712980-2 (Version None)
Quarter: 2008Q2

REPORT INFORMATION
  Report Type: 
  Country: None (occurrence: None)
  Receive Date: 20080418
  Receipt Date: 20080402
  Transmission Date: 20081010
  Serious: Yes (Hospitalization)
  Sender: FDA-Public Use
  Company Number: 002#2#2008-00212

PATIENT
  Age: 68 Year
  Sex: Male
  Weight: 99.7913 kg

DRUGS (6)
  1. NEUPRO [Suspect]
     Indication: PARKINSON'S DISEASE
     Dosage: 2MG/24H, 1 IN 1 D, TRANSDERMAL : 4MG/24H, 1 IN 1 D, TRANSDERMAL : 6 MG/24H, 1 IN 1 D, TRANSDERMAL
     Route: 062
     Dates: start: 20080301, end: 20080301
  2. NEUPRO [Suspect]
     Indication: PARKINSON'S DISEASE
     Dosage: 2MG/24H, 1 IN 1 D, TRANSDERMAL : 4MG/24H, 1 IN 1 D, TRANSDERMAL : 6 MG/24H, 1 IN 1 D, TRANSDERMAL
     Route: 062
     Dates: start: 20080301, end: 20080301
  3. NEUPRO [Suspect]
     Indication: PARKINSON'S DISEASE
     Dosage: 2MG/24H, 1 IN 1 D, TRANSDERMAL : 4MG/24H, 1 IN 1 D, TRANSDERMAL : 6 MG/24H, 1 IN 1 D, TRANSDERMAL
     Route: 062
     Dates: start: 20080301, end: 20080324
  4. SINEMET [Concomitant]
  5. SYMMETREL [Concomitant]
  6. METFORMIN HCL [Concomitant]

REACTIONS (3)
  - KIDNEY INFECTION [None]
  - MUSCLE RIGIDITY [None]
  - URINARY TRACT INFECTION [None]
